FAERS Safety Report 12681966 (Version 1)
Quarter: 2016Q3

REPORT INFORMATION
  Report Type: Report from Study
  Country: CA (occurrence: CA)
  Receive Date: 20160824
  Receipt Date: 20160824
  Transmission Date: 20161109
  Serious: Yes (Hospitalization)
  Sender: FDA-Public Use
  Company Number: CA-009507513-1608CAN010934

PATIENT
  Age: 57 Year
  Sex: Female

DRUGS (2)
  1. EMEND [Suspect]
     Active Substance: APREPITANT
     Indication: PROPHYLAXIS OF NAUSEA AND VOMITING
     Dosage: 125 MG, ONCE (STRENGTH 125MG)
     Route: 048
     Dates: start: 20160718, end: 20160718
  2. EMEND [Suspect]
     Active Substance: APREPITANT
     Dosage: 80 MG, DAY2 AND DAY 3 (STRENGTH 80MG)
     Route: 048
     Dates: start: 20160719

REACTIONS (3)
  - Asthenia [Unknown]
  - Peripheral swelling [Recovered/Resolved]
  - Fatigue [Unknown]

NARRATIVE: CASE EVENT DATE: 20160718
